FAERS Safety Report 10028173 (Version 1)
Quarter: 2014Q1

REPORT INFORMATION
  Report Type: Spontaneous
  Country: US (occurrence: None)
  Receive Date: 20140319
  Receipt Date: 20140319
  Transmission Date: 20141002
  Serious: Yes (Other)
  Sender: FDA-Public Use
  Company Number: 2235886

PATIENT
  Age: 74 Year
  Sex: Female
  Weight: 59.1 kg

DRUGS (8)
  1. OXALIPLATIN [Suspect]
     Indication: COLON CANCER
     Dosage: 140 MG, 1 D
     Route: 042
     Dates: start: 20140123
  2. OXALIPLATIN [Suspect]
     Indication: COLON CANCER
     Dosage: 140 MG, 1 DAY
     Route: 042
     Dates: start: 20140123
  3. EMEND [Suspect]
     Indication: NAUSEA
     Route: 042
     Dates: start: 20140123
  4. DECADRON [Suspect]
     Indication: NAUSEA
     Route: 042
     Dates: start: 20140123
  5. PEPCID [Suspect]
     Indication: DRUG THERAPY
     Route: 042
     Dates: start: 20140123
  6. ALOXI [Suspect]
     Indication: NAUSEA
     Route: 042
     Dates: start: 20140123
  7. LEUCOVORIN [Suspect]
     Route: 042
     Dates: start: 20140123
  8. 5-FU [Suspect]
     Indication: CHEMOTHERAPY
     Route: 042
     Dates: start: 20140123

REACTIONS (2)
  - Dyspnoea [None]
  - Wheezing [None]
